FAERS Safety Report 22004191 (Version 1)
Quarter: 2023Q1

REPORT INFORMATION
  Report Type: Spontaneous
  Country: US (occurrence: US)
  Receive Date: 20230217
  Receipt Date: 20230217
  Transmission Date: 20230418
  Serious: Yes (Other)
  Sender: FDA-Public Use
  Company Number: US-SA-2023SA050497

PATIENT
  Age: 53 Year
  Sex: Male

DRUGS (2)
  1. DUPILUMAB [Suspect]
     Active Substance: DUPILUMAB
     Indication: Dermatitis atopic
     Dosage: 600 MG, 1X
  2. DUPILUMAB [Suspect]
     Active Substance: DUPILUMAB
     Dosage: 300 MG, QOW

REACTIONS (12)
  - Punctate keratitis [Recovered/Resolved]
  - Corneal oedema [Recovered/Resolved]
  - Eye irritation [Recovered/Resolved]
  - Keratitis [Recovered/Resolved]
  - Vision blurred [Recovered/Resolved]
  - Symblepharon [Not Recovered/Not Resolved]
  - Eyelid disorder [Not Recovered/Not Resolved]
  - Conjunctivitis [Recovered/Resolved with Sequelae]
  - Conjunctival hyperaemia [Recovered/Resolved with Sequelae]
  - Entropion [Not Recovered/Not Resolved]
  - Conjunctival scar [Not Recovered/Not Resolved]
  - Eye pain [Not Recovered/Not Resolved]
